FAERS Safety Report 23779683 (Version 4)
Quarter: 2024Q3

REPORT INFORMATION
  Report Type: Report from Study
  Country: US (occurrence: US)
  Receive Date: 20240424
  Receipt Date: 20240821
  Transmission Date: 20241017
  Serious: Yes (Other)
  Sender: ABBVIE
  Company Number: US-ABBVIE-5732521

PATIENT
  Age: 67 Year
  Sex: Male

DRUGS (2)
  1. RINVOQ [Suspect]
     Active Substance: UPADACITINIB
     Indication: Rheumatoid arthritis
     Route: 048
     Dates: start: 20221201
  2. RINVOQ [Suspect]
     Active Substance: UPADACITINIB
     Indication: Rheumatoid arthritis
     Route: 048

REACTIONS (6)
  - Medical device implantation [Recovering/Resolving]
  - Stent placement [Recovering/Resolving]
  - Psoriasis [Not Recovered/Not Resolved]
  - Osteoarthritis [Unknown]
  - Gout [Unknown]
  - Inflammation [Unknown]

NARRATIVE: CASE EVENT DATE: 20231101
